FAERS Safety Report 19573742 (Version 1)
Quarter: 2021Q3

REPORT INFORMATION
  Report Type: Spontaneous
  Country: TW (occurrence: TW)
  Receive Date: 20210717
  Receipt Date: 20210717
  Transmission Date: 20211014
  Serious: No
  Sender: FDA-Public Use
  Company Number: TW-LUPIN PHARMACEUTICALS INC.-2021-11963

PATIENT
  Age: 41 Year
  Sex: Female

DRUGS (2)
  1. IVERMECTIN. [Suspect]
     Active Substance: IVERMECTIN
     Indication: ROSACEA
     Dosage: UNK, QD
     Route: 061
  2. CARVEDILOL. [Suspect]
     Active Substance: CARVEDILOL
     Indication: ROSACEA
     Dosage: 6.25 MILLIGRAM, BID
     Route: 048

REACTIONS (1)
  - Rosacea [Recovered/Resolved]
